FAERS Safety Report 7406471-0 (Version None)
Quarter: 2011Q2

REPORT INFORMATION
  Report Type: 
  Country: None (occurrence: None)
  Receive Date: 20110405
  Receipt Date: 20110405
  Transmission Date: 20111010
  Serious: Yes (Life-Threatening, Hospitalization, Other)
  Sender: FDA-Public Use
  Company Number: None

PATIENT
  Age: 66 Year
  Sex: Female
  Weight: 97.977 kg

DRUGS (2)
  1. CRESTOR [Suspect]
     Indication: BLOOD CHOLESTEROL INCREASED
     Dosage: 1/2 TABLET DAILY PO
     Route: 048
     Dates: start: 20100922, end: 20110201
  2. NIASPAN [Suspect]
     Indication: BLOOD CHOLESTEROL INCREASED
     Dosage: 1 TABLET AT BEDTIME ONCE A DAY PO
     Route: 048
     Dates: start: 20110214, end: 20110321

REACTIONS (5)
  - BLOOD GLUCOSE INCREASED [None]
  - PALPITATIONS [None]
  - MUSCLE SPASMS [None]
  - ATRIAL FIBRILLATION [None]
  - HEART RATE IRREGULAR [None]
